FAERS Safety Report 21292966 (Version 1)
Quarter: 2022Q3

REPORT INFORMATION
  Report Type: Spontaneous
  Country: US (occurrence: US)
  Receive Date: 20220905
  Receipt Date: 20220905
  Transmission Date: 20221027
  Serious: No
  Sender: FDA-Public Use
  Company Number: US-ViiV Healthcare Limited-84417

PATIENT
  Sex: Male

DRUGS (6)
  1. RILPIVIRINE [Suspect]
     Active Substance: RILPIVIRINE
     Indication: Antiviral treatment
     Dosage: UNK,600 /900 MG, DOSE ONE
     Route: 030
     Dates: start: 20220608
  2. RILPIVIRINE [Suspect]
     Active Substance: RILPIVIRINE
     Dosage: UNK, 600/900 MG, DOSE THREE
     Route: 030
     Dates: start: 20220706
  3. RILPIVIRINE [Suspect]
     Active Substance: RILPIVIRINE
     Dosage: UNK, 600/900 MG, DOSE THREE
     Route: 030
     Dates: start: 20220804
  4. CABOTEGRAVIR [Suspect]
     Active Substance: CABOTEGRAVIR
     Indication: Antiviral treatment
     Dosage: UNK,600 /900 MG, DOSE ONE
     Route: 065
     Dates: start: 20220608
  5. CABOTEGRAVIR [Suspect]
     Active Substance: CABOTEGRAVIR
     Dosage: UNK,600 /900 MG, DOSE ONE
     Route: 065
     Dates: start: 20220706
  6. CABOTEGRAVIR [Suspect]
     Active Substance: CABOTEGRAVIR
     Dosage: UNK, 600/900 MG, DOSE THREE
     Route: 065
     Dates: start: 20220804

REACTIONS (1)
  - Inappropriate schedule of product administration [Unknown]
